FAERS Safety Report 6241639-0 (Version None)
Quarter: 2009Q2

REPORT INFORMATION
  Report Type: 
  Country: None (occurrence: None)
  Receive Date: 20090623
  Receipt Date: 20070619
  Transmission Date: 20091009
  Serious: Yes (Hospitalization)
  Sender: FDA-Public Use
  Company Number: DE-ROCHE-489443

PATIENT
  Sex: Female
  Weight: 54 kg

DRUGS (49)
  1. MYCOPHENOLATE MOFETIL [Suspect]
     Dosage: DRUG: MYCOPHENOLATMOFETIL
     Route: 048
     Dates: start: 20040610
  2. CYCLOSPORINE [Suspect]
     Route: 048
  3. CYCLOSPORINE [Suspect]
     Route: 048
     Dates: start: 20040610
  4. CYCLOSPORINE [Suspect]
     Route: 048
     Dates: start: 20040611
  5. CYCLOSPORINE [Suspect]
     Route: 048
     Dates: start: 20040618
  6. CYCLOSPORINE [Suspect]
     Route: 048
     Dates: start: 20040619
  7. CYCLOSPORINE [Suspect]
     Route: 048
     Dates: start: 20040621
  8. CYCLOSPORINE [Suspect]
     Route: 048
     Dates: start: 20040622
  9. CYCLOSPORINE [Suspect]
     Route: 048
     Dates: start: 20040624
  10. CYCLOSPORINE [Suspect]
     Route: 048
     Dates: start: 20040625
  11. CYCLOSPORINE [Suspect]
     Route: 048
     Dates: start: 20041208
  12. CYCLOSPORINE [Suspect]
     Route: 048
     Dates: start: 20050614
  13. CYCLOSPORINE [Suspect]
     Route: 048
     Dates: start: 20051209
  14. CYCLOSPORINE [Suspect]
     Route: 048
     Dates: start: 20060517
  15. CYCLOSPORINE [Suspect]
     Route: 048
     Dates: start: 20061211
  16. PREDNISOLONE [Suspect]
     Dosage: FORM: IV AMP
     Route: 050
     Dates: start: 20040610, end: 20040611
  17. PREDNISOLONE [Suspect]
     Dosage: FORM: IV AMP
     Route: 050
     Dates: start: 20040611, end: 20040612
  18. PREDNISOLONE [Suspect]
     Dosage: FORM: ORAL TABLET
     Route: 050
     Dates: start: 20040612, end: 20040618
  19. PREDNISOLONE [Suspect]
     Dosage: FORM: IV AMP
     Route: 050
     Dates: start: 20040618, end: 20040619
  20. PREDNISOLONE [Suspect]
     Route: 050
     Dates: start: 20040621, end: 20041013
  21. PREDNISOLONE [Suspect]
     Dosage: FORM: ORAL TABLET
     Route: 050
     Dates: start: 20041014
  22. PREDNISOLONE [Suspect]
     Dosage: FORM: ORAL TABLET
     Route: 050
     Dates: start: 20050614
  23. PREDNISOLONE [Suspect]
     Dosage: FORM: ORAL TABLET
     Route: 050
     Dates: start: 20051209
  24. PREDNISOLONE [Suspect]
     Dosage: FORM: ORAL TABLET
     Route: 050
     Dates: start: 20061211, end: 20070201
  25. ACTONEL [Concomitant]
     Route: 048
     Dates: start: 20040611
  26. AMPHOTERICIN B [Concomitant]
     Route: 061
     Dates: start: 20040610
  27. AMPHOTERICIN B [Concomitant]
     Route: 061
     Dates: start: 20040702, end: 20041208
  28. ARANESP [Concomitant]
     Route: 058
     Dates: start: 20040626, end: 20040818
  29. NOREPINEPHRINE BITARTRATE [Concomitant]
     Route: 042
     Dates: start: 20040610, end: 20040611
  30. CALCETAT [Concomitant]
     Route: 048
     Dates: start: 20040614, end: 20040701
  31. CIPROFLOXACIN [Concomitant]
     Route: 048
     Dates: start: 20040705, end: 20040708
  32. CIPROFLOXACIN [Concomitant]
     Route: 048
     Dates: start: 20040726, end: 20040801
  33. DOBUTAMIN [Concomitant]
     Route: 042
     Dates: start: 20040610, end: 20040612
  34. DREISAVIT [Concomitant]
     Route: 048
     Dates: end: 20040630
  35. DREISAVIT [Concomitant]
     Route: 048
  36. FLUVASTATIN [Concomitant]
     Route: 048
     Dates: start: 20040611
  37. FUROSEMID [Concomitant]
     Route: 048
     Dates: start: 20040629, end: 20050613
  38. HYDROCHLORTHIAZID [Concomitant]
     Route: 048
     Dates: start: 20040705, end: 20041115
  39. KEPINOL [Concomitant]
     Route: 048
     Dates: start: 20040614, end: 20050530
  40. LACTULOSE [Concomitant]
     Route: 048
     Dates: start: 20040615, end: 20040623
  41. LORAZEPAM [Concomitant]
     Route: 048
     Dates: start: 20040615, end: 20040619
  42. NULYTELY [Concomitant]
     Route: 048
     Dates: start: 20040815
  43. NEORECORMON [Concomitant]
     Route: 042
     Dates: end: 20040625
  44. NEORECORMON [Concomitant]
     Route: 042
  45. REDUCTO [Concomitant]
     Route: 048
     Dates: start: 20040629, end: 20041208
  46. TROMCARDIN [Concomitant]
     Dosage: DRUG: TROCARDIN FORTE
     Route: 048
     Dates: start: 20040623, end: 20040629
  47. AMPICILLIN AND SULBACTAM [Concomitant]
     Route: 042
     Dates: start: 20040610, end: 20040614
  48. UNACID PD [Concomitant]
     Route: 048
     Dates: start: 20040614, end: 20040630
  49. K DUR [Concomitant]
     Dosage: DRUG: K DURILE
     Route: 048
     Dates: start: 20040627

REACTIONS (1)
  - CHOLECYSTITIS [None]
